FAERS Safety Report 25365085 (Version 1)
Quarter: 2025Q2

REPORT INFORMATION
  Report Type: Spontaneous
  Country: US (occurrence: US)
  Receive Date: 20250527
  Receipt Date: 20250527
  Transmission Date: 20250716
  Serious: No
  Sender: SANOFI AVENTIS
  Company Number: US-SA-2025SA149200

PATIENT
  Sex: Male
  Weight: 84.55 kg

DRUGS (2)
  1. DUPIXENT [Suspect]
     Active Substance: DUPILUMAB
     Indication: Dermatitis atopic
     Dosage: 300 MG, QOW
     Route: 058
  2. CAPVAXIVE [Concomitant]
     Active Substance: CORYNEBACTERIUM DIPHTHERIAE CRM197 PROTEIN\STREPTOCOCCUS PNEUMONIAE TYPE 10A CAPSULAR POLYSACCHARIDE

REACTIONS (2)
  - Cough [Unknown]
  - Nasopharyngitis [Unknown]
